FAERS Safety Report 6357731-6 (Version None)
Quarter: 2009Q3

REPORT INFORMATION
  Report Type: 
  Country: None (occurrence: None)
  Receive Date: 20090911
  Receipt Date: 20090903
  Transmission Date: 20100115
  Serious: Yes (Death)
  Sender: FDA-Public Use
  Company Number: AE-2009-152

PATIENT
  Age: 82 Year
  Sex: Male

DRUGS (24)
  1. FUROSEMIDE [Suspect]
     Indication: OLIGURIA
     Dosage: 250MG,QD,ORAL
     Route: 048
  2. GENTAMICIN [Suspect]
     Indication: CATHETER PLACEMENT
     Dosage: 120MG, INTRAMUSCULAR
     Route: 030
     Dates: start: 20050628, end: 20050628
  3. CIPROFLAXACIN [Suspect]
     Indication: PNEUMONIA
     Dosage: 400MG, INTRAVENOUS
     Route: 042
     Dates: start: 20050628, end: 20050630
  4. CIPROFLAXACIN [Suspect]
     Indication: PNEUMONIA
     Dosage: ORAL
     Route: 048
     Dates: start: 20050630, end: 20050702
  5. CALCICHEW [Concomitant]
  6. CETRIAXONE [Concomitant]
  7. DALTEPARIN SODIUM [Concomitant]
  8. FUROSEMIDE [Concomitant]
  9. DOCUSATE [Concomitant]
  10. HALOPERIDOL [Concomitant]
  11. HYOSCINE [Concomitant]
  12. IPRATROPIUM [Concomitant]
  13. DOTHIEPIN HYDROCHLORIDE [Concomitant]
  14. METRONIDAZOLE [Concomitant]
  15. MIDAZOLAM HCL [Concomitant]
  16. MORPHINE [Concomitant]
  17. OMEPRAZOLE [Concomitant]
  18. ALBUTEROL [Concomitant]
  19. MS CONTIN [Concomitant]
  20. SANDO K [Concomitant]
  21. TERBUTALINE SULFATE [Concomitant]
  22. WARFARIN SODIUM [Concomitant]
  23. SODIUM BICARBONATE IN PLASTIC CONTAINER [Concomitant]
  24. INTRAVENOUS FLUIDS [Concomitant]

REACTIONS (1)
  - RENAL FAILURE [None]
